FAERS Safety Report 12239649 (Version 1)
Quarter: 2016Q2

REPORT INFORMATION
  Report Type: Report from Study
  Country: BR (occurrence: BR)
  Receive Date: 20160405
  Receipt Date: 20160405
  Transmission Date: 20160815
  Serious: Yes (Other)
  Sender: FDA-Public Use
  Company Number: PHHY2016BR044346

PATIENT
  Sex: Female
  Weight: 54 kg

DRUGS (1)
  1. EXELON PATCH [Suspect]
     Active Substance: RIVASTIGMINE
     Indication: SENILE DEMENTIA
     Dosage: UNK UNK, QD
     Route: 062
     Dates: start: 2015

REACTIONS (2)
  - Rib fracture [Unknown]
  - Fall [Unknown]
